FAERS Safety Report 17070187 (Version 1)
Quarter: 2019Q4

REPORT INFORMATION
  Report Type: Report from Study
  Country: None (occurrence: GB)
  Receive Date: 20191125
  Receipt Date: 20191125
  Transmission Date: 20200122
  Serious: Yes (Other)
  Sender: FDA-Public Use
  Company Number: GB-MICRO LABS LIMITED-ML2019-03128

PATIENT
  Age: 62 Year
  Sex: Female

DRUGS (6)
  1. FUROSEMIDE. [Suspect]
     Active Substance: FUROSEMIDE
  2. LOSARTAN. [Suspect]
     Active Substance: LOSARTAN
  3. AMLODIPINE [Suspect]
     Active Substance: AMLODIPINE BESYLATE
     Indication: HYPERTENSION
  4. BACLOFEN. [Suspect]
     Active Substance: BACLOFEN
  5. OXYCODONE [Suspect]
     Active Substance: OXYCODONE
  6. DOXAZOSIN [Suspect]
     Active Substance: DOXAZOSIN MESYLATE

REACTIONS (6)
  - Dry eye [Unknown]
  - Hypoxia [Unknown]
  - Posture abnormal [Unknown]
  - Dysstasia [Unknown]
  - Tachycardia [Unknown]
  - Hypotension [Unknown]
